FAERS Safety Report 11494870 (Version 1)
Quarter: 2015Q3

REPORT INFORMATION
  Report Type: Spontaneous
  Country: US (occurrence: US)
  Receive Date: 20150911
  Receipt Date: 20150911
  Transmission Date: 20151125
  Serious: No
  Sender: FDA-Public Use
  Company Number: US-ROCHE-792211

PATIENT
  Sex: Female
  Weight: 71.2 kg

DRUGS (6)
  1. HYDROCODONE [Concomitant]
     Active Substance: HYDROCODONE
  2. VALIUM [Concomitant]
     Active Substance: DIAZEPAM
  3. TELAPREVIR [Suspect]
     Active Substance: TELAPREVIR
     Indication: PRODUCT USED FOR UNKNOWN INDICATION
     Dosage: DRUG NAME REPORTED AS INCIVEK.
     Route: 065
  4. RIBAVIRIN. [Suspect]
     Active Substance: RIBAVIRIN
     Indication: PRODUCT USED FOR UNKNOWN INDICATION
     Route: 065
     Dates: start: 20110713
  5. PEGASYS [Suspect]
     Active Substance: PEGINTERFERON ALFA-2A
     Indication: HEPATITIS C
     Dosage: FORM: SYRINGE.  THERAPY DURATION: 2 WEEKS. ON 20 JULY, PATIENT RECEIVED PEGINTERFERON ALFA 2A.LAST D
     Route: 058
  6. PHENORO [Concomitant]
     Dosage: DRUG NAME REPORTED AS PHENORGAN
     Route: 065

REACTIONS (4)
  - Needle issue [Unknown]
  - Rash [Unknown]
  - Influenza like illness [Unknown]
  - Procedural complication [Unknown]
